FAERS Safety Report 23521164 (Version 2)
Quarter: 2024Q1

REPORT INFORMATION
  Report Type: Spontaneous
  Country: GB (occurrence: GB)
  Receive Date: 20240214
  Receipt Date: 20240219
  Transmission Date: 20240409
  Serious: Yes (Other)
  Sender: FDA-Public Use
  Company Number: GB-AUROBINDO-AUR-APL-2023-043275

PATIENT

DRUGS (9)
  1. DONEPEZIL [Suspect]
     Active Substance: DONEPEZIL
     Indication: Dementia Alzheimer^s type
     Dosage: 10 MILLIGRAM, QD (5 MILLIGRAM, ONCE A DAY, FILM-COATED TABLET)
     Route: 048
     Dates: start: 20220804, end: 202209
  2. DONEPEZIL [Suspect]
     Active Substance: DONEPEZIL
     Dosage: 10 MILLIGRAM, QD (FILM COATED TABLET)
     Route: 048
     Dates: start: 20220907, end: 20230618
  3. MIRTAZAPINE [Suspect]
     Active Substance: MIRTAZAPINE
     Indication: Product used for unknown indication
     Dosage: 15 MILLIGRAM, QD
     Route: 048
     Dates: start: 202212
  4. CALCIUM CARBONATE\CHOLECALCIFEROL [Concomitant]
     Active Substance: CALCIUM CARBONATE\CHOLECALCIFEROL
     Indication: Product used for unknown indication
     Dosage: UNK
     Route: 048
  5. DILTIAZEM [Concomitant]
     Active Substance: DILTIAZEM
     Indication: Product used for unknown indication
     Dosage: UNK
     Route: 048
  6. LEVOTHYROXINE [Concomitant]
     Active Substance: LEVOTHYROXINE\LEVOTHYROXINE SODIUM
     Indication: Hypothyroidism
     Dosage: 50 MICROGRAM, QD
     Route: 048
  7. OMEPRAZOLE [Concomitant]
     Active Substance: OMEPRAZOLE
     Indication: Product used for unknown indication
     Dosage: UNK
     Route: 048
  8. ACETAMINOPHEN [Concomitant]
     Active Substance: ACETAMINOPHEN
     Indication: Pain
     Dosage: UNK, SOS
     Route: 048
  9. SULFASALAZINE [Concomitant]
     Active Substance: SULFASALAZINE
     Indication: Colitis
     Dosage: 500 MILLIGRAM, QID
     Route: 048

REACTIONS (2)
  - Sedation [Recovering/Resolving]
  - Weight decreased [Recovering/Resolving]

NARRATIVE: CASE EVENT DATE: 20220901
